FAERS Safety Report 24201626 (Version 1)
Quarter: 2024Q3

REPORT INFORMATION
  Report Type: Spontaneous
  Country: US (occurrence: None)
  Receive Date: 20240812
  Receipt Date: 20240812
  Transmission Date: 20241016
  Serious: No
  Sender: Public
  Company Number: None

PATIENT
  Age: 79 Year
  Sex: Female

DRUGS (1)
  1. TALTZ [Suspect]
     Active Substance: IXEKIZUMAB
     Indication: Psoriasis
     Dosage: INJECT 80MG (1 PEN) SUBCUTANEOUSLY AT WEEK 12 THEN EVERY 4 WEEKS  AS DIRECTED?
     Route: 058
     Dates: start: 202405

REACTIONS (3)
  - Incorrect dose administered [None]
  - Urinary tract infection [None]
  - Therapy interrupted [None]
